FAERS Safety Report 8007308 (Version 2)
Quarter: 2013Q2

REPORT INFORMATION
  Report Type: Spontaneous
  Country: US (occurrence: None)
  Receive Date: 20110524
  Receipt Date: 20120621
  Transmission Date: 20140414
  Serious: Yes (Other)
  Sender: FDA-Public Use
  Company Number: 029109

PATIENT
  Sex: Female
  Weight: 67.1 kg

DRUGS (6)
  1. CIMZIA [Suspect]
     Indication: CROHN^S DISEASE
     Dosage: (400 MG 1X/2 WEEKS SUBCUTANEOUS)
     Route: 058
     Dates: start: 20110202, end: 2011
  2. AMLODIPINE [Concomitant]
  3. FERREX FORTE [Concomitant]
  4. ACIPHEX [Concomitant]
  5. WELLBUTRIN [Concomitant]
  6. CITALOPRAM [Concomitant]

REACTIONS (3)
  - FAECES DISCOLOURED [None]
  - FATIGUE [None]
  - No therapeutic response [None]
